FAERS Safety Report 6152033-5 (Version None)
Quarter: 2009Q2

REPORT INFORMATION
  Report Type: 
  Country: None (occurrence: None)
  Receive Date: 20090408
  Receipt Date: 20090323
  Transmission Date: 20091009
  Serious: Yes (Hospitalization)
  Sender: FDA-Public Use
  Company Number: 8035319

PATIENT
  Age: 68 Year
  Sex: Female

DRUGS (7)
  1. KEPPRA [Suspect]
     Indication: STATUS EPILEPTICUS
     Dosage: 1 G 2/D IVI
     Dates: start: 20080712
  2. KEPPRA [Suspect]
     Indication: STATUS EPILEPTICUS
     Dosage: 0.5 G 2/D PO
     Route: 048
  3. GARDENAL /00023201/ [Suspect]
     Indication: STATUS EPILEPTICUS
     Dosage: 600 MG 1/D IVI
     Dates: start: 20080710, end: 20080710
  4. THIOPENTAL WITH SODIUM CARBONATE [Suspect]
     Indication: STATUS EPILEPTICUS
     Dosage: 12 G /D IV
     Route: 042
     Dates: start: 20080711, end: 20080711
  5. BI PRETERAX [Concomitant]
  6. AMLODIPINE BESYLATE [Concomitant]
  7. NOVOLOG [Concomitant]

REACTIONS (2)
  - CHOLESTASIS [None]
  - CYTOLYTIC HEPATITIS [None]
